FAERS Safety Report 9667472 (Version 1)
Quarter: 2013Q4

REPORT INFORMATION
  Report Type: Spontaneous
  Country: US (occurrence: US)
  Receive Date: 20131104
  Receipt Date: 20131104
  Transmission Date: 20140711
  Serious: Yes (Other)
  Sender: FDA-Public Use
  Company Number: US-TEVA-442211USA

PATIENT
  Sex: Female
  Weight: 63.56 kg

DRUGS (5)
  1. PARAGARD 380A [Suspect]
     Indication: CONTRACEPTION
     Route: 015
     Dates: start: 201305, end: 201309
  2. LAMICTAL [Concomitant]
     Indication: DEPRESSION
     Dates: start: 2007
  3. IRON PILLS [Concomitant]
  4. LO LOESTRIN [Concomitant]
  5. NUVARING [Concomitant]

REACTIONS (4)
  - Vaginal haemorrhage [Recovered/Resolved]
  - Menorrhagia [Recovered/Resolved]
  - Abdominal pain [Recovered/Resolved]
  - Blood disorder [Recovered/Resolved]
